FAERS Safety Report 20975993 (Version 1)
Quarter: 2022Q2

REPORT INFORMATION
  Report Type: Spontaneous
  Country: TR (occurrence: TR)
  Receive Date: 20220617
  Receipt Date: 20220617
  Transmission Date: 20220720
  Serious: Yes (Other)
  Sender: FDA-Public Use
  Company Number: TR-NOVARTISPH-NVSC2022TR138715

PATIENT
  Age: 16 Year
  Sex: Female

DRUGS (5)
  1. CLARITHROMYCIN [Suspect]
     Active Substance: CLARITHROMYCIN
     Indication: Tonsillitis
     Dosage: 1000 MG, QD
     Route: 048
  2. PSEUDOEPHEDRINE [Concomitant]
     Active Substance: PSEUDOEPHEDRINE
     Indication: Nasopharyngitis
     Dosage: 60 MG
     Route: 065
  3. PSEUDOEPHEDRINE [Concomitant]
     Active Substance: PSEUDOEPHEDRINE
     Indication: Rash pruritic
  4. DESLORATADINE [Concomitant]
     Active Substance: DESLORATADINE
     Indication: Nasopharyngitis
     Dosage: 2.5 MG
     Route: 065
  5. DESLORATADINE [Concomitant]
     Active Substance: DESLORATADINE
     Indication: Rash pruritic

REACTIONS (2)
  - Psychotic disorder [Recovered/Resolved]
  - Catatonia [Recovered/Resolved]
